FAERS Safety Report 17053016 (Version 1)
Quarter: 2019Q4

REPORT INFORMATION
  Report Type: Spontaneous
  Country: US (occurrence: US)
  Receive Date: 20191120
  Receipt Date: 20191120
  Transmission Date: 20200122
  Serious: Yes (Hospitalization, Other)
  Sender: FDA-Public Use
  Company Number: US-HIKMA PHARMACEUTICALS USA INC.-US-H14001-19-49868

PATIENT
  Age: 63 Year
  Sex: Female

DRUGS (2)
  1. FOLIC ACID. [Concomitant]
     Active Substance: FOLIC ACID
     Indication: PRODUCT USED FOR UNKNOWN INDICATION
     Dosage: ()
     Route: 065
  2. METHOTREXATE. [Suspect]
     Active Substance: METHOTREXATE
     Indication: PRODUCT USED FOR UNKNOWN INDICATION
     Dosage: ()
     Route: 065

REACTIONS (12)
  - Stomatitis [Unknown]
  - Neutropenia [Recovered/Resolved]
  - Epidermal necrosis [Recovered/Resolved]
  - Weight decreased [Unknown]
  - Leukopenia [Recovered/Resolved]
  - Oral candidiasis [Unknown]
  - Toxicity to various agents [Unknown]
  - Odynophagia [Unknown]
  - Pancytopenia [Recovered/Resolved]
  - Drug level increased [Unknown]
  - Decreased appetite [Unknown]
  - Macrocytosis [Unknown]
